FAERS Safety Report 6005070-5 (Version None)
Quarter: 2008Q4

REPORT INFORMATION
  Report Type: 
  Country: None (occurrence: None)
  Receive Date: 20081216
  Receipt Date: 20081209
  Transmission Date: 20090506
  Serious: Yes (Other)
  Sender: FDA-Public Use
  Company Number: PHHY2008CA31600

PATIENT

DRUGS (3)
  1. DIOVAN [Suspect]
     Indication: HYPERTENSION
  2. BETA BLOCKING AGENTS [Concomitant]
  3. DIURETICS [Concomitant]

REACTIONS (1)
  - CORONARY ARTERY BYPASS [None]
